FAERS Safety Report 6756170-3 (Version None)
Quarter: 2010Q2

REPORT INFORMATION
  Report Type: 
  Country: None (occurrence: None)
  Receive Date: 20100604
  Receipt Date: 20100520
  Transmission Date: 20101027
  Serious: Yes (Hospitalization, Other)
  Sender: FDA-Public Use
  Company Number: PHHY2010US27250

PATIENT
  Sex: Female
  Weight: 78.9 kg

DRUGS (13)
  1. FEMARA [Suspect]
     Indication: BREAST CANCER
     Dosage: 2.5 MG, QD
     Route: 048
     Dates: start: 20090701
  2. FEMARA [Suspect]
     Dosage: 2.5 MG, QD
     Route: 048
     Dates: start: 20100302, end: 20100415
  3. FEMARA [Suspect]
     Dosage: 2.5 MG, QD
     Route: 048
  4. SYNTHROID [Concomitant]
     Indication: HYPOTHYROIDISM
     Dosage: 88 MG, QD
     Route: 048
  5. SYNTHROID [Concomitant]
     Dosage: 88 UG, QD
  6. ALPHAGAN [Concomitant]
     Dosage: 1 DRP, TID
  7. COSOPT [Concomitant]
     Dosage: 1 DRP, BID
  8. NORVASC [Concomitant]
     Dosage: UNK
  9. NORVASC [Concomitant]
     Dosage: 5 MG, QD
  10. LISINOPRIL [Concomitant]
  11. ZANTAC [Concomitant]
  12. NEXIUM [Concomitant]
  13. LUMIGAN [Concomitant]
     Dosage: 1 DROP TO RIGHT EYE QHS

REACTIONS (14)
  - ABDOMINAL PAIN UPPER [None]
  - ALANINE AMINOTRANSFERASE INCREASED [None]
  - ASPARTATE AMINOTRANSFERASE INCREASED [None]
  - CHEST PAIN [None]
  - COELIAC ARTERY STENOSIS [None]
  - COLD SWEAT [None]
  - DIVERTICULUM GASTRIC [None]
  - DYSPNOEA [None]
  - LIPASE INCREASED [None]
  - MESENTERIC ARTERY STENOSIS [None]
  - MUSCLE SPASMS [None]
  - NAUSEA [None]
  - PULMONARY EMBOLISM [None]
  - TACHYCARDIA [None]
